FAERS Safety Report 14705040 (Version 1)
Quarter: 2018Q2

REPORT INFORMATION
  Report Type: Spontaneous
  Country: US (occurrence: US)
  Receive Date: 20180402
  Receipt Date: 20180402
  Transmission Date: 20180711
  Serious: Yes (Other)
  Sender: FDA-Public Use
  Company Number: US-JNJFOC-20180341027

PATIENT
  Age: 51 Year
  Sex: Male

DRUGS (7)
  1. EFAVIRENZ. [Suspect]
     Active Substance: EFAVIRENZ
     Indication: ACQUIRED IMMUNODEFICIENCY SYNDROME
     Route: 065
  2. ETHAMBUTOL [Suspect]
     Active Substance: ETHAMBUTOL HYDROCHLORIDE
     Indication: MYCOBACTERIUM AVIUM COMPLEX INFECTION
     Route: 065
  3. RITONAVIR. [Suspect]
     Active Substance: RITONAVIR
     Indication: ACQUIRED IMMUNODEFICIENCY SYNDROME
     Route: 065
  4. LAMIVUDINE. [Suspect]
     Active Substance: LAMIVUDINE
     Indication: ACQUIRED IMMUNODEFICIENCY SYNDROME
     Route: 065
  5. RIFAMPIN. [Suspect]
     Active Substance: RIFAMPIN
     Indication: MYCOBACTERIUM AVIUM COMPLEX INFECTION
     Route: 065
  6. DARUNAVIR [Suspect]
     Active Substance: DARUNAVIR
     Indication: ACQUIRED IMMUNODEFICIENCY SYNDROME
     Route: 048
  7. LEVOFLOXACIN. [Suspect]
     Active Substance: LEVOFLOXACIN
     Indication: MYCOBACTERIUM AVIUM COMPLEX INFECTION
     Route: 065

REACTIONS (2)
  - Ascites [Unknown]
  - Mycobacterium avium complex immune restoration disease [Unknown]
